FAERS Safety Report 10314145 (Version 2)
Quarter: 2014Q4

REPORT INFORMATION
  Report Type: Spontaneous
  Country: IT (occurrence: IT)
  Receive Date: 20140718
  Receipt Date: 20141215
  Transmission Date: 20150528
  Serious: Yes (Hospitalization)
  Sender: FDA-Public Use
  Company Number: IT-GE HEALTHCARE MEDICAL DIAGNOSTICS-VISP-PR-1407S-0338

PATIENT
  Age: 66 Year
  Sex: Male
  Weight: 130 kg

DRUGS (7)
  1. SIVASTIN [Concomitant]
     Active Substance: SIMVASTATIN
     Indication: DYSLIPIDAEMIA
  2. TRIATEC [Concomitant]
     Active Substance: RAMIPRIL
     Indication: HYPERTENSIVE CARDIOMYOPATHY
     Route: 048
  3. VISIPAQUE [Suspect]
     Active Substance: IODIXANOL
     Indication: PRODUCT USED FOR UNKNOWN INDICATION
     Route: 042
     Dates: start: 20140408, end: 20140408
  4. CARDURA [Concomitant]
     Active Substance: DOXAZOSIN MESYLATE
     Indication: HYPERTENSIVE CARDIOMYOPATHY
     Route: 048
  5. VISIPAQUE [Suspect]
     Active Substance: IODIXANOL
     Indication: DIAGNOSTIC PROCEDURE
  6. NEBILOX [Concomitant]
     Active Substance: NEBIVOLOL HYDROCHLORIDE
     Indication: HYPERTENSIVE CARDIOMYOPATHY
     Route: 048
  7. NORVASC [Concomitant]
     Active Substance: AMLODIPINE BESYLATE
     Indication: HYPERTENSIVE CARDIOMYOPATHY

REACTIONS (4)
  - Blood creatinine increased [Recovering/Resolving]
  - Renal impairment [Recovering/Resolving]
  - Urticaria [Recovering/Resolving]
  - Generalised erythema [Recovering/Resolving]

NARRATIVE: CASE EVENT DATE: 20140410
